FAERS Safety Report 21903779 (Version 1)
Quarter: 2023Q1

REPORT INFORMATION
  Report Type: Spontaneous
  Country: US (occurrence: US)
  Receive Date: 20230124
  Receipt Date: 20230124
  Transmission Date: 20230418
  Serious: Yes (Other)
  Sender: FDA-Public Use
  Company Number: US-MYLANLABS-2023M1007225

PATIENT
  Age: 67 Year
  Sex: Male

DRUGS (1)
  1. CIDOFOVIR [Suspect]
     Active Substance: CIDOFOVIR
     Indication: Polyomavirus-associated nephropathy
     Dosage: UNK, Q2W
     Route: 065

REACTIONS (1)
  - Drug ineffective [Unknown]
